FAERS Safety Report 10230125 (Version 1)
Quarter: 2014Q2

REPORT INFORMATION
  Report Type: Report from Study
  Country: PL (occurrence: PL)
  Receive Date: 20140611
  Receipt Date: 20140611
  Transmission Date: 20141212
  Serious: Yes (Hospitalization)
  Sender: FDA-Public Use
  Company Number: PL-ASTELLAS-2014US006636

PATIENT
  Age: 4 Year
  Sex: Female

DRUGS (5)
  1. TACROLIMUS [Suspect]
     Indication: DERMATITIS ATOPIC
     Dosage: 0.03 %, ONCE A DAY, TWICE WEEKLY
     Route: 061
     Dates: start: 20120417
  2. TACROLIMUS [Suspect]
     Dosage: 0.03 %, UNKNOWN FREQ.
     Route: 061
     Dates: start: 20120301
  3. EMOLLIENTS AND PROTECTIVES [Concomitant]
     Indication: DERMATITIS ATOPIC
     Dosage: UNK UNK, UNKNOWN FREQ.
     Route: 065
  4. DIPHENHYDRAMINE [Concomitant]
     Indication: DERMATITIS ATOPIC
     Dosage: UNK UNK, UNKNOWN FREQ.
     Route: 065
  5. HYDROXYZINE [Concomitant]
     Indication: DERMATITIS ATOPIC
     Dosage: UNK UNK, UNKNOWN FREQ.
     Route: 065

REACTIONS (1)
  - Pneumonia [Unknown]
